FAERS Safety Report 5250724-1 (Version None)
Quarter: 2007Q1

REPORT INFORMATION
  Report Type: 
  Country: None (occurrence: None)
  Receive Date: 20070228
  Receipt Date: 20060626
  Transmission Date: 20070707
  Serious: Yes (Other)
  Sender: FDA-Public Use
  Company Number: US-GLAXOSMITHKLINE-A0610338A

PATIENT
  Age: 65 Year
  Sex: Female

DRUGS (8)
  1. LAMICTAL [Suspect]
     Dosage: 100MG TWICE PER DAY
     Route: 048
  2. LEXAPRO [Concomitant]
  3. NEBULIZER TREATMENT [Concomitant]
  4. PREMARIN [Concomitant]
  5. LEVOXYL [Concomitant]
  6. AMITRIPTYLINE HCL [Concomitant]
  7. VICODIN [Concomitant]
  8. MORPHINE [Concomitant]

REACTIONS (3)
  - HEPATIC ENZYME INCREASED [None]
  - NAUSEA [None]
  - VOMITING [None]
